FAERS Safety Report 19907456 (Version 5)
Quarter: 2021Q4

REPORT INFORMATION
  Report Type: Report from Study
  Country: CA (occurrence: CA)
  Receive Date: 20210930
  Receipt Date: 20211214
  Transmission Date: 20220303
  Serious: Yes (Hospitalization)
  Sender: FDA-Public Use
  Company Number: NVSC2021CA102618

PATIENT
  Age: 25 Year
  Sex: Female

DRUGS (3)
  1. COSENTYX [Suspect]
     Active Substance: SECUKINUMAB
     Indication: Ankylosing spondylitis
     Dosage: 150 MG, QMO
     Route: 058
     Dates: start: 20200728
  2. NAPROXEN [Concomitant]
     Active Substance: NAPROXEN
     Indication: Product used for unknown indication
     Dosage: UNK
     Route: 065
  3. VOLTAREN [Concomitant]
     Active Substance: DICLOFENAC SODIUM
     Indication: Product used for unknown indication
     Dosage: 1 DF, QD (100 MG/DIE)
     Route: 048
     Dates: start: 201906

REACTIONS (24)
  - Dyspnoea [Unknown]
  - Fatigue [Unknown]
  - Pyrexia [Recovered/Resolved]
  - Pyrexia [Not Recovered/Not Resolved]
  - Tonsillar hypertrophy [Unknown]
  - Back pain [Unknown]
  - Abdominal pain upper [Unknown]
  - Joint swelling [Unknown]
  - Musculoskeletal stiffness [Unknown]
  - Pain [Unknown]
  - Neck pain [Unknown]
  - Rash [Unknown]
  - Nausea [Unknown]
  - Stress [Unknown]
  - Heart rate increased [Unknown]
  - Sneezing [Not Recovered/Not Resolved]
  - Cough [Not Recovered/Not Resolved]
  - Oropharyngeal pain [Not Recovered/Not Resolved]
  - Malaise [Unknown]
  - Nasal congestion [Unknown]
  - Nasal mucosal discolouration [Unknown]
  - Nasal odour [Unknown]
  - Rhinorrhoea [Not Recovered/Not Resolved]
  - Sinusitis [Unknown]

NARRATIVE: CASE EVENT DATE: 20210901
